FAERS Safety Report 8173867-1 (Version None)
Quarter: 2012Q1

REPORT INFORMATION
  Report Type: 
  Country: None (occurrence: None)
  Receive Date: 20120229
  Receipt Date: 20120220
  Transmission Date: 20120608
  Serious: Yes (Hospitalization)
  Sender: FDA-Public Use
  Company Number: GB-US-EMD SERONO, INC.-7089553

PATIENT
  Sex: Female

DRUGS (3)
  1. REBIF [Suspect]
     Indication: MULTIPLE SCLEROSIS
  2. REBIF [Suspect]
  3. REBIF [Suspect]

REACTIONS (9)
  - MULTIPLE SCLEROSIS RELAPSE [None]
  - TACHYCARDIA [None]
  - INFLUENZA LIKE ILLNESS [None]
  - DRUG INEFFECTIVE [None]
  - FEELING COLD [None]
  - PYREXIA [None]
  - BLOOD GLUCOSE INCREASED [None]
  - NAUSEA [None]
  - DIZZINESS [None]
